FAERS Safety Report 8542605-2 (Version None)
Quarter: 2012Q3

REPORT INFORMATION
  Report Type: 
  Country: None (occurrence: None)
  Receive Date: 20120726
  Receipt Date: 20120723
  Transmission Date: 20120928
  Serious: Yes (Hospitalization)
  Sender: FDA-Public Use
  Company Number: US-GILEAD-2012-0056955

PATIENT
  Sex: Female

DRUGS (2)
  1. COUMADIN [Concomitant]
  2. LETAIRIS [Suspect]
     Indication: PRODUCT USED FOR UNKNOWN INDICATION
     Dosage: 10 MG, UNK
     Route: 048
     Dates: start: 20110105

REACTIONS (3)
  - PRESYNCOPE [None]
  - ANAEMIA [None]
  - PALPITATIONS [None]
